FAERS Safety Report 6523300-8 (Version None)
Quarter: 2009Q4

REPORT INFORMATION
  Report Type: 
  Country: None (occurrence: None)
  Receive Date: 20091231
  Receipt Date: 20091221
  Transmission Date: 20100525
  Serious: No
  Sender: FDA-Public Use
  Company Number: US-JNJFOC-20091107720

PATIENT
  Sex: Female
  Weight: 71.67 kg

DRUGS (13)
  1. DURAGESIC-100 [Suspect]
     Indication: PAIN
     Dosage: NDC#: 50458-034-05
     Route: 062
     Dates: start: 20060101, end: 20091001
  2. DURAGESIC-100 [Suspect]
     Dosage: NDC#: 50458-092-05
     Route: 062
  3. METFORMIN [Concomitant]
     Indication: DIABETES MELLITUS
     Dosage: 500 TWO IN EVENING
     Route: 048
  4. METFORMIN [Concomitant]
     Dosage: 1 IN MORNING
     Route: 048
  5. ACTOS [Concomitant]
     Indication: DIABETES MELLITUS
     Route: 048
  6. LANTUS [Concomitant]
     Indication: DIABETES MELLITUS
     Route: 058
  7. ALPRAZOLAM [Concomitant]
     Indication: NERVOUS SYSTEM DISORDER
     Route: 048
  8. MAGNESIUM [Concomitant]
     Route: 048
  9. LEVOTHYROXINE SODIUM [Concomitant]
     Indication: THYROID DISORDER
     Route: 048
  10. PRILOSEC [Concomitant]
     Indication: DYSPEPSIA
     Route: 048
  11. INDAPAMIDE [Concomitant]
     Route: 048
  12. SPIRONOLACTONE [Concomitant]
     Route: 048
  13. LISINOPRIL [Concomitant]
     Route: 048

REACTIONS (6)
  - DRUG DOSE OMISSION [None]
  - DRUG INEFFECTIVE [None]
  - HYPOKINESIA [None]
  - MUSCLE SPASMS [None]
  - NIGHT SWEATS [None]
  - PAIN [None]
